FAERS Safety Report 4559775-3 (Version None)
Quarter: 2005Q1

REPORT INFORMATION
  Report Type: 
  Country: None (occurrence: None)
  Receive Date: 20050106
  Receipt Date: 20040614
  Transmission Date: 20050727
  Serious: Yes (Life-Threatening)
  Sender: FDA-Public Use
  Company Number: WAES 0406USA01510

PATIENT
  Sex: Male

DRUGS (5)
  1. TIMOPTIC-XE [Suspect]
     Indication: GLAUCOMA
     Dosage: 2 DROPS/DAILY/OPHT
     Route: 047
     Dates: start: 20040601, end: 20040601
  2. ACCUPRIL [Concomitant]
  3. PLAVIX [Concomitant]
  4. PRAVACHOL [Concomitant]
  5. ASPIRIN [Concomitant]

REACTIONS (2)
  - EYE IRRITATION [None]
  - VISION BLURRED [None]
